FAERS Safety Report 18403905 (Version 1)
Quarter: 2020Q4

REPORT INFORMATION
  Report Type: Spontaneous
  Country: US (occurrence: US)
  Receive Date: 20201020
  Receipt Date: 20201020
  Transmission Date: 20210114
  Serious: Yes (Hospitalization, Other)
  Sender: FDA-Public Use
  Company Number: None

PATIENT
  Sex: Female

DRUGS (1)
  1. CAPECITABINE 500MG NOVADOZ PHARMACEUTICALS [Suspect]
     Active Substance: CAPECITABINE
     Indication: BREAST CANCER
     Dosage: ?          OTHER DOSE:1500 MG | 2000MG;OTHER FREQUENCY:AM | PM;?
     Route: 048
     Dates: start: 20200401

REACTIONS (2)
  - Haemorrhage [None]
  - Therapy interrupted [None]
